FAERS Safety Report 4926923-2 (Version None)
Quarter: 2006Q1

REPORT INFORMATION
  Report Type: 
  Country: None (occurrence: None)
  Receive Date: 20060228
  Receipt Date: 20050912
  Transmission Date: 20060701
  Serious: No
  Sender: FDA-Public Use
  Company Number: US-GLAXOSMITHKLINE-A0573856A

PATIENT
  Age: 55 Year
  Sex: Female

DRUGS (3)
  1. LAMICTAL [Suspect]
     Indication: DEPRESSION
     Dosage: 5MG TWICE PER DAY
     Route: 048
     Dates: start: 20050804
  2. CARBATROL [Concomitant]
  3. KLONOPIN [Concomitant]

REACTIONS (1)
  - CHEST PAIN [None]
